FAERS Safety Report 5947710-2 (Version None)
Quarter: 2008Q4

REPORT INFORMATION
  Report Type: 
  Country: None (occurrence: None)
  Receive Date: 20081110
  Receipt Date: 20081110
  Transmission Date: 20090506
  Serious: Yes (Death)
  Sender: FDA-Public Use
  Company Number: None

PATIENT
  Sex: Female
  Weight: 90.7194 kg

DRUGS (2)
  1. AMBIEN CR [Suspect]
     Indication: INSOMNIA
     Dosage: 12.5 MG DM TIME ONCE ORAL
     Route: 048
     Dates: start: 20070303
  2. AMBIEN CR [Suspect]
     Indication: INSOMNIA
     Dosage: 12.5 MG DM TIME ONCE ORAL
     Route: 048
     Dates: start: 20070730

REACTIONS (9)
  - ABNORMAL BEHAVIOUR [None]
  - ABNORMAL DREAMS [None]
  - AGGRESSION [None]
  - AMNESIA [None]
  - COMPLETED SUICIDE [None]
  - GUN SHOT WOUND [None]
  - NIGHTMARE [None]
  - SPOUSAL ABUSE [None]
  - SUICIDAL IDEATION [None]
